FAERS Safety Report 8993072 (Version 1)
Quarter: 2013Q1

REPORT INFORMATION
  Report Type: Spontaneous
  Country: GB (occurrence: GB)
  Receive Date: 20130102
  Receipt Date: 20130102
  Transmission Date: 20140127
  Serious: Yes (Hospitalization)
  Sender: FDA-Public Use
  Company Number: GB-BAYER-2012-134784

PATIENT
  Age: 51 Year
  Sex: Female
  Weight: 81 kg

DRUGS (15)
  1. ACETYLSALICYLIC ACID [Suspect]
     Indication: MYOCARDIAL INFARCTION
     Dosage: 325 MG, UNK
     Dates: start: 20080916, end: 20090903
  2. CLOPIDOGREL BISULFATE [Suspect]
     Indication: MYOCARDIAL INFARCTION
     Dosage: UNK
     Dates: start: 20080917, end: 20090303
  3. PLACEBO [Concomitant]
     Dosage: UNK
     Route: 048
     Dates: start: 20081119
  4. FAMOTIDINE [Concomitant]
     Dosage: 20 MG, UNK
     Dates: start: 20090215
  5. HYDROXYZINE HYDROCHLORIDE [Concomitant]
     Dosage: 10 MG, UNK
     Dates: start: 20080809
  6. LISINOPRIL [Concomitant]
     Dosage: 5 MG, UNK
     Dates: start: 20080918
  7. METFORMIN [Concomitant]
     Dosage: 1000 MG, UNK
     Dates: start: 20080929
  8. METOPROLOL [Concomitant]
     Dosage: 50 MG, UNK
     Dates: start: 20090203
  9. MULTIVITAMIN [Concomitant]
     Dosage: UNK
     Dates: start: 20081119
  10. OMEGA 3 FATTY ACIDS [Concomitant]
     Dosage: UNK
     Dates: start: 20081009
  11. ROSUVASTATIN [Concomitant]
     Dosage: 40 MG, UNK
     Dates: start: 20081225
  12. TRAZODONE [Concomitant]
     Dosage: 50 MG, UNK
     Dates: start: 20080809
  13. VARENICLINE [Concomitant]
     Dosage: 2 MG, UNK
     Dates: start: 20090929
  14. VENLAFAXINE HYDROCHLORIDE [Concomitant]
     Dosage: UNK
     Dates: start: 20080929
  15. MULTIVITAMIN AND MINERAL SUPPLEMENT [Concomitant]
     Dosage: UNK
     Dates: start: 20081218

REACTIONS (1)
  - Gastrointestinal vascular malformation [Recovered/Resolved]
